FAERS Safety Report 10390013 (Version 1)
Quarter: 2014Q3

REPORT INFORMATION
  Report Type: Spontaneous
  Country: IT (occurrence: None)
  Receive Date: 20140813
  Receipt Date: 20140813
  Transmission Date: 20150326
  Serious: Yes (Hospitalization)
  Sender: FDA-Public Use
  Company Number: AUR-APL-2014-08530

PATIENT
  Age: 64 Year
  Sex: Male

DRUGS (1)
  1. AMOXICILLIN (AMOXICILLIN) UNKNOWN [Suspect]
     Active Substance: AMOXICILLIN
     Indication: PHARYNGOTONSILLITIS
     Dosage: 2G TOTAL, ORAL
     Route: 048
     Dates: start: 20140529, end: 20140529

REACTIONS (3)
  - Dyspnoea [None]
  - Macroglossia [None]
  - Tongue oedema [None]

NARRATIVE: CASE EVENT DATE: 20140529
